FAERS Safety Report 16910750 (Version 2)
Quarter: 2019Q4

REPORT INFORMATION
  Report Type: Spontaneous
  Country: DE (occurrence: DE)
  Receive Date: 20191012
  Receipt Date: 20191101
  Transmission Date: 20200122
  Serious: Yes (Other)
  Sender: FDA-Public Use
  Company Number: DE-AMGEN-DEUSP2019163968

PATIENT
  Age: 62 Year
  Sex: Male

DRUGS (2)
  1. SINGLE DOSE PREFILLED AUTOINJECTOR(AMGEVITA) [Suspect]
     Active Substance: ADALIMUMAB
     Indication: ANKYLOSING SPONDYLITIS
     Dosage: 40 MILLIGRAM, Q2WK
     Route: 058
     Dates: start: 201905, end: 20190909
  2. XARELTO [Concomitant]
     Active Substance: RIVAROXABAN
     Indication: THROMBOSIS
     Dosage: 20 MILLIGRAM, QD
     Dates: start: 201804, end: 201909

REACTIONS (2)
  - Epistaxis [Recovered/Resolved]
  - Petechiae [Recovered/Resolved]

NARRATIVE: CASE EVENT DATE: 201908
